FAERS Safety Report 4984298-7 (Version None)
Quarter: 2006Q2

REPORT INFORMATION
  Report Type: 
  Country: None (occurrence: None)
  Receive Date: 20060420
  Receipt Date: 20060412
  Transmission Date: 20061013
  Serious: Yes (Hospitalization)
  Sender: FDA-Public Use
  Company Number: CH-2006-000702

PATIENT
  Sex: Female

DRUGS (1)
  1. MIRENA [Suspect]
     Dosage: 20 UG/DAY, CONT, INTRA-UTERINE
     Route: 015
     Dates: start: 20040601

REACTIONS (3)
  - CYST RUPTURE [None]
  - INTRA-ABDOMINAL HAEMORRHAGE [None]
  - INTRA-UTERINE CONTRACEPTIVE DEVICE EXPELLED [None]
